FAERS Safety Report 26157675 (Version 1)
Quarter: 2025Q4

REPORT INFORMATION
  Report Type: Spontaneous
  Country: US (occurrence: None)
  Receive Date: 20251212
  Receipt Date: 20251212
  Transmission Date: 20260117
  Serious: No
  Sender: FDA-CTU
  Company Number: None

PATIENT
  Age: 49 Year
  Sex: Female

DRUGS (1)
  1. LENALIDOMIDE [Suspect]
     Active Substance: LENALIDOMIDE
     Indication: Follicular lymphoma
     Dosage: FREQUENCY : DAILY;
     Route: 048
     Dates: start: 20240722, end: 20250824

REACTIONS (3)
  - Fatigue [None]
  - Intentional dose omission [None]
  - Therapeutic response unexpected [None]

NARRATIVE: CASE EVENT DATE: 20251103
